FAERS Safety Report 7876402-8 (Version None)
Quarter: 2011Q4

REPORT INFORMATION
  Report Type: 
  Country: None (occurrence: None)
  Receive Date: 20111031
  Receipt Date: 20111020
  Transmission Date: 20120403
  Serious: Yes (Other)
  Sender: FDA-Public Use
  Company Number: PHHY2011DE79342

PATIENT
  Age: 77 Year
  Sex: Male

DRUGS (7)
  1. TEBONIN [Concomitant]
     Dosage: 1 DF, BID
     Route: 048
  2. CYMBALTA [Concomitant]
     Indication: DEPRESSED MOOD
     Dosage: UNK
     Route: 048
     Dates: start: 20110812, end: 20111018
  3. TEBONIN [Concomitant]
     Dosage: 2 DF, BID
     Route: 048
  4. AMITRIPTYLINE HCL [Concomitant]
     Dosage: 2 DF, QD (2 IN THE EVENING)
     Route: 048
  5. EXELON [Suspect]
     Indication: DEMENTIA
     Dosage: 1.5 MG, BID
     Route: 048
     Dates: start: 20101130, end: 20110907
  6. NOOTROP [Concomitant]
     Dosage: 2 DF, BID
     Route: 048
  7. METFORMIN HCL [Concomitant]
     Dosage: UNK, BID
     Route: 048

REACTIONS (4)
  - AGITATION [None]
  - RESTLESSNESS [None]
  - PSYCHOTIC DISORDER [None]
  - DEPRESSED MOOD [None]
